FAERS Safety Report 7080819-1 (Version None)
Quarter: 2010Q4

REPORT INFORMATION
  Report Type: 
  Country: None (occurrence: None)
  Receive Date: 20101102
  Receipt Date: 20101102
  Transmission Date: 20110411
  Serious: Yes (Other)
  Sender: FDA-Public Use
  Company Number: None

PATIENT
  Age: 14 Month
  Sex: Male
  Weight: 8.95 kg

DRUGS (2)
  1. GAMUNEX [Suspect]
     Indication: KAWASAKI'S DISEASE
     Dosage: 17 GRAMS ONCE IV  ONE DOSE
     Route: 042
     Dates: start: 20100830, end: 20100830
  2. GAMUNEX [Suspect]
     Dosage: 17 GRAMS ONCE IV  ONE DOSE
     Route: 042
     Dates: start: 20100905, end: 20100905

REACTIONS (4)
  - ANAEMIA [None]
  - AUTOIMMUNE DISORDER [None]
  - LEUKOCYTOSIS [None]
  - THROMBOCYTOSIS [None]
